FAERS Safety Report 5909471-2 (Version None)
Quarter: 2008Q4

REPORT INFORMATION
  Report Type: 
  Country: None (occurrence: None)
  Receive Date: 20081006
  Receipt Date: 20080924
  Transmission Date: 20090506
  Serious: Yes (Other)
  Sender: FDA-Public Use
  Company Number: AR-PFIZER INC-2008083420

PATIENT
  Age: 61 Year
  Sex: Female

DRUGS (5)
  1. ZOLOFT [Suspect]
     Indication: DEPRESSION
     Route: 048
     Dates: start: 20071001, end: 20080813
  2. AMLODIPINE [Concomitant]
     Route: 048
  3. T4 [Concomitant]
     Indication: HYPOTHYROIDISM
     Route: 048
  4. ESZOPICLONE [Concomitant]
     Route: 048
  5. LOSARTAN POTASSIUM AND HYDROCHLOROTHIAZIDE [Concomitant]
     Indication: HYPERTENSION
     Route: 048

REACTIONS (2)
  - AGRANULOCYTOSIS [None]
  - NON-HODGKIN'S LYMPHOMA [None]
